FAERS Safety Report 8272164-3 (Version None)
Quarter: 2012Q2

REPORT INFORMATION
  Report Type: 
  Country: None (occurrence: None)
  Receive Date: 20120410
  Receipt Date: 20120404
  Transmission Date: 20120825
  Serious: Yes (Other)
  Sender: FDA-Public Use
  Company Number: GB-TEVA-331521ISR

PATIENT
  Age: 57 Year
  Sex: Male

DRUGS (5)
  1. QUETIAPINE [Concomitant]
     Route: 048
     Dates: start: 20090101, end: 20111101
  2. INHALER [Concomitant]
     Indication: ASTHMA
     Dates: start: 20110901
  3. RISPERIDONE [Suspect]
     Indication: DEPRESSION
     Dosage: 4 MILLIGRAM;
     Route: 048
     Dates: start: 20111101
  4. VENLAFAXINE [Concomitant]
     Indication: DEPRESSION
     Route: 048
     Dates: start: 20090101
  5. LITHIUM CARBONATE [Concomitant]
     Indication: DEPRESSION
     Dosage: DECREASING DOSE.
     Route: 048
     Dates: start: 20050101, end: 20111101

REACTIONS (1)
  - ASTHMA [None]
